FAERS Safety Report 17381421 (Version 1)
Quarter: 2020Q1

REPORT INFORMATION
  Report Type: Spontaneous
  Country: US (occurrence: US)
  Receive Date: 20200206
  Receipt Date: 20200206
  Transmission Date: 20200409
  Serious: No
  Sender: FDA-Public Use
  Company Number: US-ABBVIE-19K-163-2792263-00

PATIENT
  Age: 57 Year
  Sex: Female
  Weight: 47.22 kg

DRUGS (7)
  1. LEVOTHYROXINE SODIUM. [Concomitant]
     Active Substance: LEVOTHYROXINE SODIUM
     Indication: HYPOTHYROIDISM
  2. LEXAPRO [Concomitant]
     Active Substance: ESCITALOPRAM OXALATE
     Indication: ANXIETY
  3. HUMIRA [Suspect]
     Active Substance: ADALIMUMAB
     Indication: ANKYLOSING SPONDYLITIS
     Route: 058
     Dates: start: 2017
  4. BUDESONIDE. [Suspect]
     Active Substance: BUDESONIDE
     Indication: GASTRIC DISORDER
     Route: 048
     Dates: start: 201808, end: 201810
  5. BUDESONIDE. [Suspect]
     Active Substance: BUDESONIDE
     Route: 065
     Dates: start: 201811
  6. SULFASALAZINE. [Concomitant]
     Active Substance: SULFASALAZINE
     Indication: ANKYLOSING SPONDYLITIS
  7. HUMIRA [Suspect]
     Active Substance: ADALIMUMAB
     Route: 058

REACTIONS (8)
  - Colitis microscopic [Not Recovered/Not Resolved]
  - Diarrhoea [Recovering/Resolving]
  - Stress [Not Recovered/Not Resolved]
  - Device issue [Unknown]
  - Arthralgia [Unknown]
  - Nausea [Recovering/Resolving]
  - Gastric disorder [Recovering/Resolving]
  - Immunodeficiency [Not Recovered/Not Resolved]

NARRATIVE: CASE EVENT DATE: 2017
